FAERS Safety Report 12936545 (Version 2)
Quarter: 2017Q2

REPORT INFORMATION
  Report Type: Report from Study
  Country: NL (occurrence: NL)
  Receive Date: 20161114
  Receipt Date: 20170523
  Transmission Date: 20170830
  Serious: Yes (Hospitalization)
  Sender: FDA-Public Use
  Company Number: NL-ROCHE-1853641

PATIENT
  Age: 65 Year
  Sex: Female

DRUGS (5)
  1. COBIMETINIB [Suspect]
     Active Substance: COBIMETINIB
     Indication: METASTATIC MALIGNANT MELANOMA
     Dosage: MOST CURRENT TREATMENT: 09/NOV/2016
     Route: 048
     Dates: start: 20160406
  2. VEMURAFENIB [Suspect]
     Active Substance: VEMURAFENIB
     Indication: METASTATIC MALIGNANT MELANOMA
     Dosage: MOST CURRENT TREATMENT: 09/NOV/2016
     Route: 048
     Dates: start: 20160406
  3. AMOXICILLINE [Concomitant]
     Active Substance: AMOXICILLIN
     Route: 042
     Dates: start: 20161108, end: 20161110
  4. CIPROXIN [Concomitant]
     Active Substance: CIPROFLOXACIN
     Route: 048
     Dates: start: 20161108, end: 20161115
  5. CLAVULANIC ACID [Concomitant]
     Active Substance: CLAVULANIC ACID
     Route: 042
     Dates: start: 20161108, end: 20161110

REACTIONS (1)
  - Pneumonia [Recovered/Resolved]

NARRATIVE: CASE EVENT DATE: 20161108
